FAERS Safety Report 13561672 (Version 1)
Quarter: 2017Q2

REPORT INFORMATION
  Report Type: Spontaneous
  Country: US (occurrence: US)
  Receive Date: 20170518
  Receipt Date: 20170518
  Transmission Date: 20170830
  Serious: No
  Sender: FDA-Public Use
  Company Number: US-ACTELION-A-US2014-105683

PATIENT
  Age: 66 Year
  Sex: Female

DRUGS (13)
  1. PROAIR HFA [Concomitant]
     Active Substance: ALBUTEROL SULFATE
  2. LOSARTAN. [Concomitant]
     Active Substance: LOSARTAN
  3. ATENOLOL. [Concomitant]
     Active Substance: ATENOLOL
  4. ADEMPAS [Concomitant]
     Active Substance: RIOCIGUAT
     Dosage: UNK, QD
  5. OPSUMIT [Suspect]
     Active Substance: MACITENTAN
     Indication: PULMONARY HYPERTENSION
     Dosage: 10 MG, QD
     Route: 048
     Dates: start: 20140409
  6. NITROFURANTOIN. [Concomitant]
     Active Substance: NITROFURANTOIN
  7. RAMIPRIL. [Concomitant]
     Active Substance: RAMIPRIL
  8. LEVOTHYROXINE. [Concomitant]
     Active Substance: LEVOTHYROXINE
  9. RIOCIGUAT [Concomitant]
     Active Substance: RIOCIGUAT
  10. VITAMIN B12 [Concomitant]
     Active Substance: CYANOCOBALAMIN
  11. MULTIVITAMIN [Concomitant]
     Active Substance: VITAMINS
  12. GABAPENTIN. [Concomitant]
     Active Substance: GABAPENTIN
  13. CENTRUM [Concomitant]
     Active Substance: VITAMINS

REACTIONS (6)
  - Inappropriate schedule of drug administration [Unknown]
  - Anxiety [Unknown]
  - Oedema peripheral [Not Recovered/Not Resolved]
  - Chest pain [Recovering/Resolving]
  - Swelling [Unknown]
  - Dizziness [Recovered/Resolved]

NARRATIVE: CASE EVENT DATE: 20170514
